FAERS Safety Report 21628771 (Version 1)
Quarter: 2022Q4

REPORT INFORMATION
  Report Type: Spontaneous
  Country: US (occurrence: US)
  Receive Date: 20221122
  Receipt Date: 20221122
  Transmission Date: 20230112
  Serious: No
  Sender: FDA-Public Use
  Company Number: US-GLENMARK PHARMACEUTICALS-2022GMK072400

PATIENT

DRUGS (1)
  1. TACROLIMUS [Suspect]
     Active Substance: TACROLIMUS
     Indication: Dermatitis contact
     Dosage: UNK
     Route: 061
     Dates: start: 202201

REACTIONS (2)
  - Product administered at inappropriate site [Unknown]
  - Drug effective for unapproved indication [Unknown]
